FAERS Safety Report 6962316-4 (Version None)
Quarter: 2010Q3

REPORT INFORMATION
  Report Type: 
  Country: None (occurrence: None)
  Receive Date: 20100902
  Receipt Date: 20100820
  Transmission Date: 20110219
  Serious: Yes (Hospitalization, Other)
  Sender: FDA-Public Use
  Company Number: GB-ELI_LILLY_AND_COMPANY-GB201008006319

PATIENT
  Age: 34 Year
  Sex: Male

DRUGS (1)
  1. ZYPREXA [Suspect]
     Indication: SCHIZOPHRENIA, PARANOID TYPE
     Dosage: UNK, UNKNOWN
     Route: 065

REACTIONS (3)
  - DRUG INEFFECTIVE [None]
  - SCHIZOPHRENIA [None]
  - TREATMENT NONCOMPLIANCE [None]
